FAERS Safety Report 4356822-9 (Version None)
Quarter: 2004Q2

REPORT INFORMATION
  Report Type: 
  Country: None (occurrence: None)
  Receive Date: 20040507
  Receipt Date: 20040427
  Transmission Date: 20050107
  Serious: Yes (Hospitalization)
  Sender: FDA-Public Use
  Company Number: GB-JNJFOC-20040405771

PATIENT
  Age: 57 Year
  Sex: Female

DRUGS (9)
  1. REMICADE [Suspect]
     Indication: RHEUMATOID ARTHRITIS
     Dosage: 185 MG, INTRAVENOUS
     Route: 042
     Dates: start: 20000324, end: 20031001
  2. METHOTREXATE [Concomitant]
  3. DEPO-MEDROL [Concomitant]
  4. DICLOFENAC (DICLOFENAC) [Concomitant]
  5. FOLIC ACID [Concomitant]
  6. ENALAPRIL MALEATE [Concomitant]
  7. HRT (ANDROGENS AND FEMALE SEX HORMONES IN COMB) [Concomitant]
  8. OMEPRAZOLE [Concomitant]
  9. SELENIUM (SELENIUM) [Concomitant]

REACTIONS (1)
  - APPENDICITIS PERFORATED [None]
